FAERS Safety Report 25841575 (Version 1)
Quarter: 2025Q3

REPORT INFORMATION
  Report Type: Spontaneous
  Country: IN (occurrence: IN)
  Receive Date: 20250924
  Receipt Date: 20250924
  Transmission Date: 20251020
  Serious: Yes (Disabling)
  Sender: ACCORD
  Company Number: IN-MLMSERVICE-20250905-PI637301-00306-1

PATIENT
  Sex: Male

DRUGS (5)
  1. TACROLIMUS [Suspect]
     Active Substance: TACROLIMUS
     Indication: Vernal keratoconjunctivitis
     Dosage: TWO TIMES PER DAY
     Route: 061
  2. BENZALKONIUM CHLORIDE [Suspect]
     Active Substance: BENZALKONIUM CHLORIDE
     Indication: Product used for unknown indication
  3. BRINZOLAMIDE, BRIMONIDINE [Concomitant]
     Indication: Vernal keratoconjunctivitis
     Dosage: TWO TIMES PER DAY
  4. BRINZOLAMIDE, BRIMONIDINE [Concomitant]
     Indication: Glaucoma
     Dosage: TWO TIMES PER DAY
  5. TACROLIMUS [Suspect]
     Active Substance: TACROLIMUS
     Indication: Glaucoma
     Dosage: TWO TIMES PER DAY
     Route: 061

REACTIONS (7)
  - Keratitis [Recovered/Resolved]
  - Keratouveitis [Recovered/Resolved]
  - Microsporidia infection [Recovered/Resolved]
  - Infection [Recovered/Resolved]
  - Keratic precipitates [Recovered/Resolved]
  - Cataract subcapsular [Recovered/Resolved]
  - Reaction to excipient [Recovered/Resolved]
